FAERS Safety Report 5929198-0 (Version None)
Quarter: 2008Q4

REPORT INFORMATION
  Report Type: 
  Country: None (occurrence: None)
  Receive Date: 20081023
  Receipt Date: 20081023
  Transmission Date: 20090506
  Serious: Yes (Hospitalization)
  Sender: FDA-Public Use
  Company Number: None

PATIENT
  Age: 37 Year
  Sex: Female
  Weight: 99.3377 kg

DRUGS (1)
  1. CHANTIX [Suspect]
     Indication: SMOKING CESSATION THERAPY
     Dates: start: 20080925, end: 20081017

REACTIONS (10)
  - CHEST DISCOMFORT [None]
  - DYSARTHRIA [None]
  - DYSPNOEA [None]
  - FEELING HOT [None]
  - GAIT DISTURBANCE [None]
  - JOINT LOCK [None]
  - LIP SWELLING [None]
  - LOSS OF CONSCIOUSNESS [None]
  - PALLOR [None]
  - SWELLING FACE [None]
